FAERS Safety Report 22060934 (Version 11)
Quarter: 2024Q1

REPORT INFORMATION
  Report Type: Spontaneous
  Country: US (occurrence: US)
  Receive Date: 20230303
  Receipt Date: 20240104
  Transmission Date: 20240409
  Serious: Yes (Other)
  Sender: FDA-Public Use
  Company Number: US-PFIZER INC-202200316893

PATIENT
  Age: 60 Year
  Sex: Male

DRUGS (2)
  1. EUCRISA [Suspect]
     Active Substance: CRISABOROLE
     Indication: Eczema
     Dosage: UNK
  2. EUCRISA [Suspect]
     Active Substance: CRISABOROLE
     Indication: Seborrhoeic dermatitis

REACTIONS (9)
  - Generalised anxiety disorder [Unknown]
  - Expired product administered [Unknown]
  - Drug ineffective [Unknown]
  - Pain [Unknown]
  - Eczema [Unknown]
  - Condition aggravated [Unknown]
  - Claustrophobia [Unknown]
  - Macule [Unknown]
  - Dermatitis [Unknown]
